FAERS Safety Report 8783120 (Version 2)
Quarter: 2013Q1

REPORT INFORMATION
  Report Type: Report from Study
  Country: JP (occurrence: JP)
  Receive Date: 20120913
  Receipt Date: 20130225
  Transmission Date: 20140127
  Serious: Yes (Other)
  Sender: FDA-Public Use
  Company Number: JP-VERTEX PHARMACEUTICAL INC.-AE-2012-004590

PATIENT
  Age: 62 Year
  Sex: Female

DRUGS (18)
  1. VX-950 (TELAPREVIR) [Suspect]
     Indication: CHRONIC HEPATITIS C
     Dosage: 1500 MG, QD
     Route: 048
     Dates: start: 20120207, end: 20120305
  2. VX-950 (TELAPREVIR) [Suspect]
     Dosage: 500 MG, QD
     Route: 048
     Dates: start: 20120306, end: 20120312
  3. VX-950 (TELAPREVIR) [Suspect]
     Dosage: 1000 MG, QD
     Route: 048
     Dates: start: 20120313, end: 20120423
  4. VX-950 (TELAPREVIR) [Suspect]
     Dosage: 500 MG, QD
     Route: 048
     Dates: start: 20120424, end: 20120501
  5. REBETOL [Suspect]
     Indication: CHRONIC HEPATITIS C
     Dosage: 600 MG, QD
     Route: 048
     Dates: start: 20120207, end: 20120227
  6. REBETOL [Suspect]
     Dosage: 200 MG, QD
     Route: 048
     Dates: start: 20120228, end: 20120321
  7. REBETOL [Suspect]
     Dosage: 400 MG, QD
     Route: 048
     Dates: start: 20120322, end: 20120625
  8. REBETOL [Suspect]
     Dosage: 600 MG, QD
     Route: 048
     Dates: start: 20120626, end: 20120731
  9. PEGINTRON [Suspect]
     Indication: CHRONIC HEPATITIS C
     Dosage: 1.5 ?G/KG, QW
     Route: 058
     Dates: start: 20120207, end: 20120213
  10. PEGINTRON [Suspect]
     Dosage: 60 ?G, QW
     Route: 058
     Dates: start: 20120214, end: 20120220
  11. PEGINTRON [Suspect]
     Dosage: 70 ?G, QW
     Route: 058
     Dates: start: 20120221, end: 20120227
  12. PEGINTRON [Suspect]
     Dosage: 50 ?G, QW
     Route: 058
     Dates: start: 20120228, end: 20120724
  13. PEGINTRON [Suspect]
     Dosage: 1.5 ?G/KG, UNK
     Route: 058
     Dates: end: 20120724
  14. INSULIN 30 MIX [Concomitant]
     Dosage: UNK
     Route: 058
     Dates: start: 20090311
  15. REVOLADE [Concomitant]
     Dosage: 12.5 MG, QD
     Route: 048
     Dates: start: 20110303
  16. UNISIA [Concomitant]
     Dosage: 1 DF, QD
     Route: 048
     Dates: start: 20110729, end: 20120315
  17. BLOPRESS [Concomitant]
     Dosage: 8 MG, QD
     Route: 048
     Dates: start: 20120316
  18. CELESTAMINE [Concomitant]
     Dosage: 4 DF, QD
     Route: 048
     Dates: start: 20120403, end: 20120501

REACTIONS (3)
  - Dizziness [Recovered/Resolved]
  - Malaise [Recovered/Resolved]
  - Malaise [Recovered/Resolved]
